FAERS Safety Report 8594307 (Version 5)
Quarter: 2013Q4

REPORT INFORMATION
  Report Type: Spontaneous
  Country: JP (occurrence: JP)
  Receive Date: 20120604
  Receipt Date: 20131203
  Transmission Date: 20140711
  Serious: Yes (Death, Life-Threatening, Other)
  Sender: FDA-Public Use
  Company Number: JP-ROCHE-1070605

PATIENT
  Age: 66 Year
  Sex: Female

DRUGS (8)
  1. AVASTIN [Suspect]
     Indication: BREAST CANCER METASTATIC
     Route: 041
     Dates: start: 20120127, end: 20120406
  2. PACLITAXEL [Concomitant]
     Indication: BREAST CANCER METASTATIC
     Route: 041
     Dates: start: 20120127, end: 20120330
  3. LYRICA [Concomitant]
     Indication: NEUROPATHY PERIPHERAL
     Route: 048
     Dates: start: 201107, end: 20120412
  4. MUCOSTA [Concomitant]
     Indication: GASTRITIS
     Route: 048
     Dates: start: 201111
  5. LOXONIN [Concomitant]
     Indication: PAIN
     Dosage: A DOSE
     Route: 048
     Dates: start: 20110706
  6. JUVELA N [Concomitant]
     Dosage: DOSAGE IS UNCERTAIN.
     Route: 048
  7. ALLOPURINOL [Concomitant]
     Dosage: DOSAGE IS UNCERTAIN.
     Route: 048
  8. CRAVIT [Concomitant]
     Dosage: DOSAGE IS UNCERTAIN.
     Route: 047

REACTIONS (4)
  - Hepatic failure [Fatal]
  - Duodenal perforation [Not Recovered/Not Resolved]
  - Disseminated intravascular coagulation [Recovered/Resolved]
  - Peritonitis [Unknown]
